FAERS Safety Report 6078541-3 (Version None)
Quarter: 2009Q1

REPORT INFORMATION
  Report Type: 
  Country: None (occurrence: None)
  Receive Date: 20090212
  Receipt Date: 20090212
  Transmission Date: 20090719
  Serious: Yes (Hospitalization)
  Sender: FDA-Public Use
  Company Number: None

PATIENT
  Age: 72 Year
  Sex: Male
  Weight: 71.82 kg

DRUGS (2)
  1. CUBICIN [Suspect]
     Indication: INTERVERTEBRAL DISCITIS
     Dosage: 600MG DAILY IV
     Route: 042
     Dates: start: 20081127, end: 20081217
  2. CUBICIN [Suspect]
     Indication: OSTEOMYELITIS
     Dosage: 600MG DAILY IV
     Route: 042
     Dates: start: 20081127, end: 20081217

REACTIONS (2)
  - ACUTE RESPIRATORY DISTRESS SYNDROME [None]
  - PNEUMONITIS [None]
